FAERS Safety Report 9641727 (Version 3)
Quarter: 2013Q4

REPORT INFORMATION
  Report Type: Spontaneous
  Country: US (occurrence: US)
  Receive Date: 20131023
  Receipt Date: 20131108
  Transmission Date: 20140711
  Serious: Yes (Hospitalization, Other)
  Sender: FDA-Public Use
  Company Number: US-TEVA-438920USA

PATIENT
  Age: 67 Year
  Sex: Female

DRUGS (7)
  1. ACTIQ [Suspect]
     Indication: BREAKTHROUGH PAIN
     Route: 048
  2. FENTANYL [Concomitant]
     Indication: BREAKTHROUGH PAIN
     Route: 062
  3. SUPPOSITORIES [Concomitant]
     Indication: NAUSEA
  4. INJECTION (IM) [Concomitant]
     Indication: MIGRAINE
  5. MORPHINE SULFATE [Concomitant]
  6. HYDROCHLOROTHIAZIDE [Concomitant]
     Indication: HYPERTENSION
  7. VALIUM [Concomitant]
     Indication: ANXIETY

REACTIONS (7)
  - Withdrawal syndrome [Recovered/Resolved]
  - Staphylococcal infection [Unknown]
  - Breast disorder [Unknown]
  - Blood pressure increased [Not Recovered/Not Resolved]
  - Pain [Not Recovered/Not Resolved]
  - Bedridden [Not Recovered/Not Resolved]
  - Off label use [Unknown]
